FAERS Safety Report 9034377 (Version 1)
Quarter: 2013Q1

REPORT INFORMATION
  Report Type: Spontaneous
  Country: US (occurrence: US)
  Receive Date: 20130128
  Receipt Date: 20130128
  Transmission Date: 20140127
  Serious: Yes (Hospitalization, Other)
  Sender: FDA-Public Use
  Company Number: US-AMGEN-USASP2012066115

PATIENT
  Sex: Female

DRUGS (5)
  1. PROLIA [Suspect]
     Indication: PRODUCT USED FOR UNKNOWN INDICATION
     Dosage: UNK
     Dates: start: 201205
  2. VITAMIN B-12 [Concomitant]
  3. CALCIUM WITH VITAMIN D [Concomitant]
  4. TRAMADOL [Concomitant]
  5. XANAX [Concomitant]

REACTIONS (4)
  - Impaired healing [Unknown]
  - Osteonecrosis [Unknown]
  - Cellulitis [Unknown]
  - Insomnia [Unknown]
